FAERS Safety Report 8535932-6 (Version None)
Quarter: 2012Q3

REPORT INFORMATION
  Report Type: 
  Country: None (occurrence: None)
  Receive Date: 20120725
  Receipt Date: 20120720
  Transmission Date: 20120928
  Serious: Yes (Other)
  Sender: FDA-Public Use
  Company Number: PHHY2009BR24538

PATIENT
  Age: 46 Year
  Sex: Male

DRUGS (6)
  1. NALOPRIL [Concomitant]
     Indication: HYPERTENSION
     Dosage: 2 DF, DAILY
     Route: 048
     Dates: end: 20090616
  2. CLONAZEPAM [Concomitant]
     Dosage: 1 DF, AT NIGHT
     Route: 048
  3. TRILEPTAL [Suspect]
     Dosage: 3 DF, QD, (1 TABLET AND A HALF IN THE MORNING AND 1 TABLET AND A HALF AT NIGHT)
     Route: 048
  4. HYDANTAL TAB [Concomitant]
     Dosage: 1 DF, TID, MORNING, AFTERNOON AND NIGHT.
  5. TRILEPTAL [Suspect]
     Indication: CONVULSION
     Dosage: 1 DF, QD
     Route: 048
     Dates: start: 20090613
  6. TRILEPTAL [Suspect]
     Dosage: 1 DF, QD
     Route: 048
     Dates: start: 20090614

REACTIONS (18)
  - TACHYCARDIA [None]
  - TINNITUS [None]
  - INCORRECT DOSE ADMINISTERED [None]
  - DYSPNOEA [None]
  - CHILLS [None]
  - FEELING HOT [None]
  - DYSGEUSIA [None]
  - FEELING ABNORMAL [None]
  - NAUSEA [None]
  - ANGER [None]
  - INSOMNIA [None]
  - NIGHTMARE [None]
  - TREMOR [None]
  - MALAISE [None]
  - BLOOD PRESSURE INCREASED [None]
  - DIZZINESS [None]
  - HEADACHE [None]
  - HYPOAESTHESIA [None]
